FAERS Safety Report 6504604-1 (Version None)
Quarter: 2009Q4

REPORT INFORMATION
  Report Type: 
  Country: None (occurrence: None)
  Receive Date: 20091215
  Receipt Date: 20091204
  Transmission Date: 20100525
  Serious: No
  Sender: FDA-Public Use
  Company Number: 2009AC000489

PATIENT
  Age: 60 Year
  Sex: Male

DRUGS (42)
  1. DIGOXIN [Suspect]
     Dosage: 0.25 MG
  2. DIGOXIN [Suspect]
     Dosage: 0.125 MG; QD; PO
     Route: 048
  3. VASOTEC [Concomitant]
  4. FUROSEMIDE [Concomitant]
  5. AMARYL [Concomitant]
  6. TRICOR [Concomitant]
  7. COREG [Concomitant]
  8. POTASSIUM CHLORIDE [Concomitant]
  9. CORTISPORIN [Concomitant]
  10. ENALAPRIL [Concomitant]
  11. AVANDIA [Concomitant]
  12. MAGNESIUM OXIDE [Concomitant]
  13. GLIMEPIRIDE [Concomitant]
  14. ZOFRAN [Concomitant]
  15. NEO/POLYB/HC [Concomitant]
  16. FERROUS FUMARATE [Concomitant]
  17. GLIPIZIDE [Concomitant]
  18. RANITIDINE [Concomitant]
  19. LISINOPRIL [Concomitant]
  20. LEVITRA [Concomitant]
  21. FERROUS SULFATE TAB [Concomitant]
  22. METFORMIN HCL [Concomitant]
  23. NEO/PLYYXIN/HC [Concomitant]
  24. FLOXIN [Concomitant]
  25. CIPRODEX [Concomitant]
  26. NIASPAN [Concomitant]
  27. OMEPRAZOLE [Concomitant]
  28. JANUVIA [Concomitant]
  29. FLEXTRA [Concomitant]
  30. LANTUS [Concomitant]
  31. CARVEDILOL [Concomitant]
  32. AMLODIPINE [Concomitant]
  33. LISINOPRIL [Concomitant]
  34. KLOR-COM [Concomitant]
  35. CARVEDILOL [Concomitant]
  36. LANTUS [Concomitant]
  37. SIMVASTATIN [Concomitant]
  38. ASPIRIN [Concomitant]
  39. FERROUS SULFATE TAB [Concomitant]
  40. OMEPRAZOLE [Concomitant]
  41. NIASPAN [Concomitant]
  42. AMLODIPINE [Concomitant]

REACTIONS (17)
  - ANAEMIA [None]
  - ASTHENIA [None]
  - DECREASED APPETITE [None]
  - DEHYDRATION [None]
  - DIABETES MELLITUS INADEQUATE CONTROL [None]
  - GASTRITIS [None]
  - HELICOBACTER TEST POSITIVE [None]
  - HYPOPHAGIA [None]
  - HYPOVOLAEMIA [None]
  - LEFT VENTRICULAR HYPERTROPHY [None]
  - NAUSEA [None]
  - NECK PAIN [None]
  - NO THERAPEUTIC RESPONSE [None]
  - OTITIS MEDIA [None]
  - RENAL FAILURE ACUTE [None]
  - THERAPEUTIC AGENT TOXICITY [None]
  - VOMITING [None]
